FAERS Safety Report 9742687 (Version 2)
Quarter: 2013Q4

REPORT INFORMATION
  Report Type: Spontaneous
  Country: US (occurrence: US)
  Receive Date: 20131210
  Receipt Date: 20131210
  Transmission Date: 20140711
  Serious: No
  Sender: FDA-Public Use
  Company Number: US-GILEAD-2009-0024628

PATIENT
  Sex: Male
  Weight: 122.92 kg

DRUGS (10)
  1. LETAIRIS [Suspect]
     Indication: PULMONARY ARTERIAL HYPERTENSION
     Route: 048
     Dates: start: 20091021, end: 20091205
  2. LETAIRIS [Suspect]
     Dates: start: 20080208, end: 20090805
  3. REVATIO [Concomitant]
  4. COUMADIN [Concomitant]
  5. TORASEMIDE [Concomitant]
  6. SPIRONOLACTONE [Concomitant]
  7. POTASSIUM CHLORIDE [Concomitant]
  8. ATIVAN [Concomitant]
  9. OXYGEN [Concomitant]
  10. GLIPIZIDE [Concomitant]

REACTIONS (1)
  - Blood bilirubin increased [Not Recovered/Not Resolved]
